FAERS Safety Report 13855074 (Version 2)
Quarter: 2017Q3

REPORT INFORMATION
  Report Type: Spontaneous
  Country: FR (occurrence: FR)
  Receive Date: 20170810
  Receipt Date: 20170901
  Transmission Date: 20171127
  Serious: Yes (Hospitalization, Other)
  Sender: FDA-Public Use
  Company Number: FR-ACTELION-A-CH2017-157545

PATIENT
  Age: 51 Year
  Sex: Male

DRUGS (12)
  1. CLAMOXYL [Concomitant]
     Active Substance: AMOXICILLIN\CLAVULANIC ACID
     Dosage: 1 G, UNK
  2. FLUCONAZOLE. [Concomitant]
     Active Substance: FLUCONAZOLE
     Dosage: 200 MG, UNK
  3. CORDARONE [Concomitant]
     Active Substance: AMIODARONE HYDROCHLORIDE
     Dosage: 20 MG, UNK
  4. ALPRAZOLAM. [Concomitant]
     Active Substance: ALPRAZOLAM
     Dosage: 0.25 MG, UNK
  5. SMECTA [Concomitant]
     Active Substance: MONTMORILLONITE
  6. INVANZ [Interacting]
     Active Substance: ERTAPENEM SODIUM
     Indication: PRODUCT USED FOR UNKNOWN INDICATION
     Dosage: UNK
     Route: 065
     Dates: start: 20170621, end: 20170704
  7. CETIRIZINE [Concomitant]
     Active Substance: CETIRIZINE HYDROCHLORIDE
     Dosage: 10 MG, UNK
  8. TRACLEER [Suspect]
     Active Substance: BOSENTAN
     Indication: SCLERODERMA ASSOCIATED DIGITAL ULCER
     Dosage: 62.5 MG, UNK
     Route: 048
     Dates: start: 20170531
  9. FYCOMPA [Interacting]
     Active Substance: PERAMPANEL
     Indication: PRODUCT USED FOR UNKNOWN INDICATION
     Dosage: UNK
     Route: 065
     Dates: start: 20170526
  10. COUMADINE [Concomitant]
     Active Substance: WARFARIN SODIUM
     Dosage: 2 MG, UNK
  11. LOPERAMIDE [Concomitant]
     Active Substance: LOPERAMIDE
     Dosage: 2 MG, UNK
  12. HYDROXYZINE [Concomitant]
     Active Substance: HYDROXYZINE HYDROCHLORIDE
     Dosage: 25 MG, UNK

REACTIONS (6)
  - Seizure [Recovered/Resolved]
  - Drug interaction [Unknown]
  - Osteitis [Unknown]
  - Enterococcal infection [Unknown]
  - Enterobacter infection [Unknown]
  - Status epilepticus [Recovering/Resolving]

NARRATIVE: CASE EVENT DATE: 20170627
